FAERS Safety Report 9324796 (Version 1)
Quarter: 2013Q2

REPORT INFORMATION
  Report Type: Spontaneous
  Country: NL (occurrence: NL)
  Receive Date: 20130603
  Receipt Date: 20130603
  Transmission Date: 20140414
  Serious: Yes (Death)
  Sender: FDA-Public Use
  Company Number: NL-BAXTER-2013BAX016787

PATIENT
  Sex: Male

DRUGS (2)
  1. EXTRANEAL [Suspect]
     Indication: RENAL FAILURE
     Route: 033
  2. EXTRANEAL [Suspect]
     Indication: DIURETIC THERAPY

REACTIONS (1)
  - Cardiac failure [Fatal]
